FAERS Safety Report 5190188-X (Version None)
Quarter: 2006Q4

REPORT INFORMATION
  Report Type: 
  Country: None (occurrence: None)
  Receive Date: 20061222
  Receipt Date: 20061010
  Transmission Date: 20070319
  Serious: No
  Sender: FDA-Public Use
  Company Number: US-AMGEN-US196285

PATIENT
  Sex: Male

DRUGS (4)
  1. ARANESP [Suspect]
     Indication: MYELODYSPLASTIC SYNDROME
     Dates: start: 20050101
  2. DECADRON [Concomitant]
  3. TOPROL-XL [Concomitant]
  4. VIDAZA [Concomitant]

REACTIONS (3)
  - FATIGUE [None]
  - NAUSEA [None]
  - THERAPEUTIC RESPONSE DECREASED [None]
